FAERS Safety Report 15374427 (Version 1)
Quarter: 2018Q3

REPORT INFORMATION
  Report Type: Spontaneous
  Country: DE (occurrence: DE)
  Receive Date: 20180912
  Receipt Date: 20180912
  Transmission Date: 20181010
  Serious: Yes (Other)
  Sender: FDA-Public Use
  Company Number: PHHY2018DE095768

PATIENT

DRUGS (1)
  1. EVEROLIMUS. [Suspect]
     Active Substance: EVEROLIMUS
     Indication: METASTATIC RENAL CELL CARCINOMA
     Dosage: UNK
     Route: 065
     Dates: start: 201801, end: 201803

REACTIONS (11)
  - Metastatic renal cell carcinoma [Unknown]
  - Renal failure [Unknown]
  - Acute kidney injury [Unknown]
  - Humerus fracture [Unknown]
  - Azotaemia [Unknown]
  - Malignant neoplasm progression [Unknown]
  - Neoplasm progression [Unknown]
  - Chronic kidney disease [Unknown]
  - Fall [Unknown]
  - Metastases to liver [Unknown]
  - Hepatic congestion [Unknown]

NARRATIVE: CASE EVENT DATE: 2018
